FAERS Safety Report 9173898 (Version 2)
Quarter: 2013Q2

REPORT INFORMATION
  Report Type: Spontaneous
  Country: JP (occurrence: JP)
  Receive Date: 20130320
  Receipt Date: 20130614
  Transmission Date: 20140414
  Serious: Yes (Other)
  Sender: FDA-Public Use
  Company Number: JP-SANOFI-AVENTIS-2013SA028715

PATIENT
  Age: 21 Year
  Sex: Male
  Weight: 63 kg

DRUGS (8)
  1. ALLEGRA [Suspect]
     Indication: PRURITUS
     Route: 048
     Dates: start: 20120616, end: 20130302
  2. ANTEBATE [Concomitant]
     Indication: ECZEMA
     Route: 061
     Dates: start: 20120616
  3. LIDOMEX [Concomitant]
     Indication: ECZEMA
     Route: 061
     Dates: start: 20120613
  4. PROTOPIC [Concomitant]
     Indication: ECZEMA
     Dosage: STRENGTH: 0.03%
     Route: 061
     Dates: start: 20120918
  5. HIRUDOID [Concomitant]
     Indication: DRY SKIN PROPHYLAXIS
     Route: 061
     Dates: start: 20120602
  6. SAHNE [Concomitant]
     Indication: DRY SKIN PROPHYLAXIS
     Route: 061
     Dates: start: 20120702
  7. KERATINAMIN [Concomitant]
     Indication: DRY SKIN PROPHYLAXIS
     Route: 061
     Dates: start: 20120702
  8. TOPSYM [Concomitant]
     Indication: ECZEMA
     Dosage: FORM: LOTION
     Route: 061
     Dates: start: 20121024

REACTIONS (1)
  - Hepatocellular injury [Recovered/Resolved]
